FAERS Safety Report 4532668-3 (Version None)
Quarter: 2004Q4

REPORT INFORMATION
  Report Type: 
  Country: None (occurrence: None)
  Receive Date: 20041221
  Receipt Date: 20041208
  Transmission Date: 20050328
  Serious: Yes (Other)
  Sender: FDA-Public Use
  Company Number: PHRM2004FR03639

PATIENT
  Age: 55 Year
  Sex: Female

DRUGS (2)
  1. TEGRETOL [Suspect]
     Indication: BLEPHAROSPASM
     Dosage: 200 MG, BID
  2. LIORESAL [Suspect]
     Indication: MULTIPLE SCLEROSIS
     Route: 048

REACTIONS (3)
  - ABASIA [None]
  - DRUG INTERACTION [None]
  - FACIAL PALSY [None]
